FAERS Safety Report 26150911 (Version 1)
Quarter: 2025Q4

REPORT INFORMATION
  Report Type: Spontaneous
  Country: US (occurrence: US)
  Receive Date: 20251212
  Receipt Date: 20251212
  Transmission Date: 20260118
  Serious: Yes (Other)
  Sender: Kenvue
  Company Number: US-KENVUE-20251201667

PATIENT
  Sex: Male

DRUGS (3)
  1. TYLENOL [Suspect]
     Active Substance: ACETAMINOPHEN
     Indication: Migraine
     Dosage: 500-2000 MG, AS NEEDED
     Dates: start: 202412
  2. NURTEC ODT [Suspect]
     Active Substance: RIMEGEPANT SULFATE
     Indication: Migraine
     Dosage: 75 MILLIGRAM, AS NEEDED (PRN)
     Dates: start: 2022
  3. BOTOX [Suspect]
     Active Substance: ONABOTULINUMTOXINA
     Indication: Migraine prophylaxis
     Dosage: 100-110 UNITS EVERY 3 MONTHS (Q3M)

REACTIONS (2)
  - Foetal exposure during pregnancy [Unknown]
  - Postnatal growth restriction [Not Recovered/Not Resolved]

NARRATIVE: CASE EVENT DATE: 20251114
